FAERS Safety Report 9310950 (Version 1)
Quarter: 2013Q1

REPORT INFORMATION
  Report Type: Spontaneous
  Country: DE (occurrence: None)
  Receive Date: 20130204
  Receipt Date: 20130204
  Transmission Date: 20140127
  Serious: Yes (Hospitalization)
  Sender: FDA-Public Use
  Company Number: 2012BI038469

PATIENT
  Age: 41 Year
  Sex: Female

DRUGS (8)
  1. FAMPYRA (FAMPRIDINE) [Suspect]
     Indication: MULTIPLE SCLEROSIS
     Dates: start: 20111219, end: 2012
  2. TYSABRI (NATALIZUMAB) [Concomitant]
  3. AMANTADINE (AMANTADINE) [Concomitant]
  4. BACLOFEN (BACLOFEN) (BACLOFEN) [Concomitant]
  5. DESMOPRESSIN (DESMOPRESSIN) [Concomitant]
  6. SPASMEX (TROSPIUM CHLORIDE) [Concomitant]
  7. IBUPROFEN (IBUPROFEN) [Concomitant]
  8. TRIMINEURIN (TRIMIPRAMINE MALEATE) [Concomitant]

REACTIONS (4)
  - Grand mal convulsion [None]
  - Migraine [None]
  - Cognitive disorder [None]
  - Progressive multifocal leukoencephalopathy [None]
